FAERS Safety Report 25302450 (Version 1)
Quarter: 2025Q2

REPORT INFORMATION
  Report Type: Spontaneous
  Country: DE (occurrence: DE)
  Receive Date: 20250512
  Receipt Date: 20250512
  Transmission Date: 20250716
  Serious: Yes (Congenital Anomaly)
  Sender: MYLAN
  Company Number: DE-EMB-M201915259-1

PATIENT
  Sex: Female
  Weight: 1.84 kg

DRUGS (32)
  1. VENLAFAXINE [Suspect]
     Active Substance: VENLAFAXINE HYDROCHLORIDE
     Indication: Post-traumatic stress disorder
     Dates: start: 201908, end: 201911
  2. VENLAFAXINE [Suspect]
     Active Substance: VENLAFAXINE HYDROCHLORIDE
     Indication: Depression
     Dates: start: 201908, end: 201911
  3. VENLAFAXINE [Suspect]
     Active Substance: VENLAFAXINE HYDROCHLORIDE
     Route: 064
     Dates: start: 201908, end: 201911
  4. VENLAFAXINE [Suspect]
     Active Substance: VENLAFAXINE HYDROCHLORIDE
     Route: 064
     Dates: start: 201908, end: 201911
  5. VENLAFAXINE [Suspect]
     Active Substance: VENLAFAXINE HYDROCHLORIDE
     Dates: start: 201908, end: 201911
  6. VENLAFAXINE [Suspect]
     Active Substance: VENLAFAXINE HYDROCHLORIDE
     Dates: start: 201908, end: 201911
  7. VENLAFAXINE [Suspect]
     Active Substance: VENLAFAXINE HYDROCHLORIDE
     Route: 064
     Dates: start: 201908, end: 201911
  8. VENLAFAXINE [Suspect]
     Active Substance: VENLAFAXINE HYDROCHLORIDE
     Route: 064
     Dates: start: 201908, end: 201911
  9. LEVOTHYROXINE SODIUM [Concomitant]
     Active Substance: LEVOTHYROXINE SODIUM
     Indication: Thyroid disorder
     Dosage: 75 MICROGRAM, QD
     Dates: start: 201908, end: 202003
  10. LEVOTHYROXINE SODIUM [Concomitant]
     Active Substance: LEVOTHYROXINE SODIUM
     Dosage: 75 MICROGRAM, QD
     Dates: start: 201908, end: 202003
  11. LEVOTHYROXINE SODIUM [Concomitant]
     Active Substance: LEVOTHYROXINE SODIUM
     Dosage: 75 MICROGRAM, QD
     Route: 064
     Dates: start: 201908, end: 202003
  12. LEVOTHYROXINE SODIUM [Concomitant]
     Active Substance: LEVOTHYROXINE SODIUM
     Dosage: 75 MICROGRAM, QD
     Route: 064
     Dates: start: 201908, end: 202003
  13. LEVOTHYROXINE SODIUM [Concomitant]
     Active Substance: LEVOTHYROXINE SODIUM
     Dosage: 75 MICROGRAM, QD
     Dates: start: 201908, end: 202003
  14. LEVOTHYROXINE SODIUM [Concomitant]
     Active Substance: LEVOTHYROXINE SODIUM
     Dosage: 75 MICROGRAM, QD
     Dates: start: 201908, end: 202003
  15. LEVOTHYROXINE SODIUM [Concomitant]
     Active Substance: LEVOTHYROXINE SODIUM
     Dosage: 75 MICROGRAM, QD
     Route: 064
     Dates: start: 201908, end: 202003
  16. LEVOTHYROXINE SODIUM [Concomitant]
     Active Substance: LEVOTHYROXINE SODIUM
     Dosage: 75 MICROGRAM, QD
     Route: 064
     Dates: start: 201908, end: 202003
  17. OLANZAPINE [Concomitant]
     Active Substance: OLANZAPINE
     Indication: Post-traumatic stress disorder
     Dosage: 1.25 MILLIGRAM, QD
     Dates: start: 201912, end: 202001
  18. OLANZAPINE [Concomitant]
     Active Substance: OLANZAPINE
     Dosage: 1.25 MILLIGRAM, QD
     Dates: start: 201912, end: 202001
  19. OLANZAPINE [Concomitant]
     Active Substance: OLANZAPINE
     Dosage: 1.25 MILLIGRAM, QD
     Route: 064
     Dates: start: 201912, end: 202001
  20. OLANZAPINE [Concomitant]
     Active Substance: OLANZAPINE
     Dosage: 1.25 MILLIGRAM, QD
     Route: 064
     Dates: start: 201912, end: 202001
  21. OLANZAPINE [Concomitant]
     Active Substance: OLANZAPINE
     Dosage: 1.25 MILLIGRAM, QD
     Dates: start: 201912, end: 202001
  22. OLANZAPINE [Concomitant]
     Active Substance: OLANZAPINE
     Dosage: 1.25 MILLIGRAM, QD
     Dates: start: 201912, end: 202001
  23. OLANZAPINE [Concomitant]
     Active Substance: OLANZAPINE
     Dosage: 1.25 MILLIGRAM, QD
     Route: 064
     Dates: start: 201912, end: 202001
  24. OLANZAPINE [Concomitant]
     Active Substance: OLANZAPINE
     Dosage: 1.25 MILLIGRAM, QD
     Route: 064
     Dates: start: 201912, end: 202001
  25. CHLORPROTHIXENE [Concomitant]
     Active Substance: CHLORPROTHIXENE
     Indication: Sleep disorder
     Dosage: 50 MILLIGRAM, QD
     Dates: start: 201908, end: 201909
  26. CHLORPROTHIXENE [Concomitant]
     Active Substance: CHLORPROTHIXENE
     Indication: Anxiety disorder
     Dosage: 50 MILLIGRAM, QD
     Dates: start: 201908, end: 201909
  27. CHLORPROTHIXENE [Concomitant]
     Active Substance: CHLORPROTHIXENE
     Dosage: 50 MILLIGRAM, QD
     Route: 064
     Dates: start: 201908, end: 201909
  28. CHLORPROTHIXENE [Concomitant]
     Active Substance: CHLORPROTHIXENE
     Dosage: 50 MILLIGRAM, QD
     Route: 064
     Dates: start: 201908, end: 201909
  29. CHLORPROTHIXENE [Concomitant]
     Active Substance: CHLORPROTHIXENE
     Dosage: 50 MILLIGRAM, QD
     Dates: start: 201908, end: 201909
  30. CHLORPROTHIXENE [Concomitant]
     Active Substance: CHLORPROTHIXENE
     Dosage: 50 MILLIGRAM, QD
     Dates: start: 201908, end: 201909
  31. CHLORPROTHIXENE [Concomitant]
     Active Substance: CHLORPROTHIXENE
     Dosage: 50 MILLIGRAM, QD
     Route: 064
     Dates: start: 201908, end: 201909
  32. CHLORPROTHIXENE [Concomitant]
     Active Substance: CHLORPROTHIXENE
     Dosage: 50 MILLIGRAM, QD
     Route: 064
     Dates: start: 201908, end: 201909

REACTIONS (2)
  - Atrial septal defect [Not Recovered/Not Resolved]
  - Foetal exposure during pregnancy [Unknown]
